FAERS Safety Report 4290430-3 (Version None)
Quarter: 2004Q1

REPORT INFORMATION
  Report Type: 
  Country: None (occurrence: None)
  Receive Date: 20040209
  Receipt Date: 20040122
  Transmission Date: 20041129
  Serious: Yes (Other)
  Sender: FDA-Public Use
  Company Number: DSA_23922_2004

PATIENT
  Age: 19 Year
  Sex: Female

DRUGS (2)
  1. TAVOR [Suspect]
     Dosage: 1 MG ONCE PO
     Route: 048
     Dates: start: 20040118, end: 20040118
  2. WINE [Suspect]
     Dates: start: 20040118, end: 20040118

REACTIONS (3)
  - ALCOHOL USE [None]
  - DRUG ABUSER [None]
  - VOMITING [None]
